FAERS Safety Report 8340893-9 (Version None)
Quarter: 2012Q2

REPORT INFORMATION
  Report Type: 
  Country: None (occurrence: None)
  Receive Date: 20120507
  Receipt Date: 20120425
  Transmission Date: 20120825
  Serious: Yes (Other)
  Sender: FDA-Public Use
  Company Number: US-ALLERGAN-1205400US

PATIENT
  Age: 39 Year
  Sex: Female
  Weight: 87.982 kg

DRUGS (5)
  1. IBUPROFEN TABLETS [Concomitant]
     Indication: PRODUCT USED FOR UNKNOWN INDICATION
     Dosage: UNK
     Route: 048
  2. BOTULINUM TOXIN TYPE A [Suspect]
     Indication: MIGRAINE
     Dosage: 120 UNITS, SINGLE
     Route: 030
     Dates: start: 20120411, end: 20120411
  3. TOPAMAX [Concomitant]
     Indication: PRODUCT USED FOR UNKNOWN INDICATION
     Dosage: 150 MG, QD
     Route: 048
  4. EFFEXOR [Concomitant]
     Indication: PRODUCT USED FOR UNKNOWN INDICATION
     Dosage: 150 MG, QD
     Route: 048
  5. VICODIN [Concomitant]
     Indication: POSTOPERATIVE CARE
     Dosage: UNK
     Route: 048

REACTIONS (8)
  - SUICIDAL IDEATION [None]
  - HEADACHE [None]
  - INJECTION SITE PAIN [None]
  - INSOMNIA [None]
  - EYELID PTOSIS [None]
  - NAUSEA [None]
  - MUSCLE TIGHTNESS [None]
  - MYALGIA [None]
